FAERS Safety Report 8741851 (Version 2)
Quarter: 2012Q4

REPORT INFORMATION
  Report Type: 
  Country: US (occurrence: US)
  Receive Date: 20120824
  Receipt Date: 20121015
  Transmission Date: 20130627
  Serious: No
  Sender: FDA-Public Use
  Company Number: US-PFIZER INC-2012206030

PATIENT
  Age: 72 Year
  Sex: Female
  Weight: 90.25 kg

DRUGS (10)
  1. LOMOTIL [Suspect]
     Indication: DIARRHOEA
     Dosage: UNK
  2. GABAPENTIN [Suspect]
     Indication: NEUROPATHY PERIPHERAL
     Dosage: UNK
  3. GABAPENTIN [Suspect]
     Indication: SPINAL PAIN
  4. KAOPECTATE [Suspect]
     Indication: DIARRHOEA
     Dosage: UNK
  5. PEPTO-BISMOL [Suspect]
     Indication: DIARRHOEA
     Dosage: UNK
  6. PRAVASTATIN [Concomitant]
     Indication: BLOOD CHOLESTEROL ABNORMAL
     Dosage: 20 mg, daily
  7. HYDROXYCHLOROQUINE [Concomitant]
     Indication: SJOGREN^S SYNDROME
     Dosage: 200 mg, 2x/day
  8. DIAZEPAM [Concomitant]
     Indication: ANXIETY
     Dosage: 5 mg, 2x/day
  9. DIAZEPAM [Concomitant]
     Indication: MUSCLE DISORDER
  10. LISINOPRIL [Concomitant]
     Indication: HYPERTENSION
     Dosage: 20 mg, daily

REACTIONS (2)
  - Drug ineffective [Unknown]
  - Weight increased [Unknown]
